FAERS Safety Report 25797972 (Version 1)
Quarter: 2025Q3

REPORT INFORMATION
  Report Type: Spontaneous
  Country: US (occurrence: US)
  Receive Date: 20250912
  Receipt Date: 20250912
  Transmission Date: 20251021
  Serious: No
  Sender: TAKEDA
  Company Number: US-TAKEDA-2025TUS078373

PATIENT
  Age: 34 Year
  Sex: Female

DRUGS (2)
  1. VYVANSE [Suspect]
     Active Substance: LISDEXAMFETAMINE DIMESYLATE
     Indication: Attention deficit hyperactivity disorder
  2. XELSTRYM [Concomitant]
     Active Substance: DEXTROAMPHETAMINE

REACTIONS (2)
  - Product availability issue [Unknown]
  - Drug hypersensitivity [Unknown]
